FAERS Safety Report 10360223 (Version 1)
Quarter: 2014Q3

REPORT INFORMATION
  Report Type: Spontaneous
  Country: US (occurrence: None)
  Receive Date: 20140731
  Receipt Date: 20140731
  Transmission Date: 20150326
  Serious: Yes (Other)
  Sender: FDA-Public Use
  Company Number: None

PATIENT
  Sex: Female

DRUGS (1)
  1. JOHNSONS BABY OIL [Suspect]
     Active Substance: MINERAL OIL
     Indication: SKIN WRINKLING
     Route: 023

REACTIONS (5)
  - Infection [None]
  - Swelling face [None]
  - Ear pain [None]
  - Treatment failure [None]
  - Off label use [None]
